FAERS Safety Report 6363712-9 (Version None)
Quarter: 2009Q3

REPORT INFORMATION
  Report Type: 
  Country: None (occurrence: None)
  Receive Date: 20090919
  Receipt Date: 20090702
  Transmission Date: 20100115
  Serious: No
  Sender: FDA-Public Use
  Company Number: US-ABBOTT-09P-163-0583973-00

PATIENT
  Sex: Female
  Weight: 139.38 kg

DRUGS (20)
  1. HUMIRA [Suspect]
     Indication: RHEUMATOID ARTHRITIS
     Route: 058
     Dates: start: 20090201, end: 20090625
  2. HUMIRA [Suspect]
     Route: 058
     Dates: start: 20090625
  3. CELEBREX [Concomitant]
     Indication: DRUG USE FOR UNKNOWN INDICATION
  4. PLAQUENIL [Concomitant]
     Indication: DRUG USE FOR UNKNOWN INDICATION
  5. ARAVA [Concomitant]
     Indication: DRUG USE FOR UNKNOWN INDICATION
  6. OSCAL WITH VITAMIN D [Concomitant]
     Indication: DRUG USE FOR UNKNOWN INDICATION
  7. ASCORBIC ACID [Concomitant]
     Indication: DRUG USE FOR UNKNOWN INDICATION
  8. EFFEXOR XR [Concomitant]
     Indication: ANXIOLYTIC THERAPY
  9. K-DUR [Concomitant]
     Indication: DRUG USE FOR UNKNOWN INDICATION
  10. LORCET-HD [Concomitant]
     Indication: PAIN
  11. ATARAX [Concomitant]
     Indication: ANXIOLYTIC THERAPY
  12. LASIX [Concomitant]
     Indication: FLUID RETENTION
  13. ALBUTEROL [Concomitant]
     Indication: ASTHMA
  14. ZANTAC [Concomitant]
     Indication: DRUG USE FOR UNKNOWN INDICATION
  15. TOPROL-XL [Concomitant]
     Indication: DRUG USE FOR UNKNOWN INDICATION
  16. IBUPROFEN [Concomitant]
     Indication: DRUG USE FOR UNKNOWN INDICATION
  17. ASPIRIN [Concomitant]
     Indication: DRUG USE FOR UNKNOWN INDICATION
     Route: 048
  18. FLEXERIL [Concomitant]
     Indication: DRUG USE FOR UNKNOWN INDICATION
  19. XANAX XR [Concomitant]
     Indication: DRUG USE FOR UNKNOWN INDICATION
  20. IRON INJECTIONS [Concomitant]
     Indication: DRUG USE FOR UNKNOWN INDICATION
     Route: 050

REACTIONS (4)
  - HYPOAESTHESIA [None]
  - JOINT RANGE OF MOTION DECREASED [None]
  - PAIN IN EXTREMITY [None]
  - WHITE BLOOD CELL COUNT INCREASED [None]
